FAERS Safety Report 14536684 (Version 1)
Quarter: 2018Q1

REPORT INFORMATION
  Report Type: Spontaneous
  Country: US (occurrence: US)
  Receive Date: 20180215
  Receipt Date: 20180215
  Transmission Date: 20180509
  Serious: Yes (Hospitalization)
  Sender: FDA-Public Use
  Company Number: None

PATIENT
  Age: 65 Year
  Sex: Female
  Weight: 78.4 kg

DRUGS (14)
  1. COLACE [Concomitant]
     Active Substance: DOCUSATE SODIUM
  2. NORVASC [Concomitant]
     Active Substance: AMLODIPINE BESYLATE
  3. ADVIO [Concomitant]
  4. LOPRESSOR [Concomitant]
     Active Substance: METOPROLOL TARTRATE
  5. ZANTAC [Concomitant]
     Active Substance: RANITIDINE HYDROCHLORIDE
  6. NEURONTIN [Suspect]
     Active Substance: GABAPENTIN
  7. TRANXENE [Suspect]
     Active Substance: CLORAZEPATE DIPOTASSIUM
  8. PROVENTIL [Concomitant]
     Active Substance: ALBUTEROL
  9. MONODOX [Concomitant]
     Active Substance: DOXYCYCLINE
  10. OXYCODONE [Suspect]
     Active Substance: OXYCODONE
     Indication: PAIN
     Dosage: 5MG Q6HRS PRN PO
     Route: 048
  11. PHENERGAN [Suspect]
     Active Substance: PROMETHAZINE HYDROCHLORIDE
  12. AURALGAN [Concomitant]
  13. VITD [Concomitant]
  14. TRANXENE [Concomitant]
     Active Substance: CLORAZEPATE DIPOTASSIUM

REACTIONS (3)
  - Blood pressure abnormal [None]
  - Mental status changes [None]
  - Overdose [None]

NARRATIVE: CASE EVENT DATE: 20170202
